FAERS Safety Report 6836293-0 (Version None)
Quarter: 2010Q3

REPORT INFORMATION
  Report Type: 
  Country: None (occurrence: None)
  Receive Date: 20100712
  Receipt Date: 20100712
  Transmission Date: 20110219
  Serious: Yes (Life-Threatening, Hospitalization)
  Sender: FDA-Public Use
  Company Number: None

PATIENT
  Age: 53 Year
  Sex: Female
  Weight: 70.3075 kg

DRUGS (1)
  1. CIMZIA [Suspect]
     Indication: INFLAMMATORY BOWEL DISEASE
     Dosage: 400 MG. MONTHLY SQ
     Route: 058
     Dates: start: 20100301, end: 20100701

REACTIONS (1)
  - DEEP VEIN THROMBOSIS [None]
